FAERS Safety Report 7472235-5 (Version None)
Quarter: 2011Q1

REPORT INFORMATION
  Report Type: 
  Country: None (occurrence: None)
  Receive Date: 20110302
  Receipt Date: 20101029
  Transmission Date: 20110831
  Serious: Yes (Hospitalization, Other)
  Sender: FDA-Public Use
  Company Number: 163-21880-10110178

PATIENT
  Age: 85 Year
  Sex: Male

DRUGS (4)
  1. REVLIMID [Suspect]
     Indication: MULTIPLE MYELOMA
     Dosage: 15 MG, DAILY X 21 DAYS, PO
     Route: 048
     Dates: start: 20101001
  2. PACKED RED BLOOD CELLS (BLOOD CELLS, PACKED HUMAN) [Concomitant]
  3. DEXAMETHASONE [Concomitant]
  4. ASPIRIN [Concomitant]

REACTIONS (5)
  - APHTHOUS STOMATITIS [None]
  - PYREXIA [None]
  - ANAEMIA [None]
  - NIGHT SWEATS [None]
  - FATIGUE [None]
